FAERS Safety Report 6779540-6 (Version None)
Quarter: 2010Q2

REPORT INFORMATION
  Report Type: 
  Country: None (occurrence: None)
  Receive Date: 20100618
  Receipt Date: 20100611
  Transmission Date: 20101027
  Serious: Yes (Other)
  Sender: FDA-Public Use
  Company Number: FR-AMGEN-QUU409765

PATIENT
  Sex: Female
  Weight: 58 kg

DRUGS (1)
  1. ARANESP [Suspect]
     Indication: RENAL FAILURE CHRONIC
     Route: 058
     Dates: start: 20100301, end: 20100430

REACTIONS (2)
  - HOT FLUSH [None]
  - MALIGNANT NEOPLASM PROGRESSION [None]
